FAERS Safety Report 15347035 (Version 3)
Quarter: 2018Q3

REPORT INFORMATION
  Report Type: Report from Study
  Country: US (occurrence: US)
  Receive Date: 20180904
  Receipt Date: 20180917
  Transmission Date: 20181010
  Serious: Yes (Hospitalization)
  Sender: FDA-Public Use
  Company Number: US-ROCHE-2177646

PATIENT
  Age: 50 Year
  Sex: Female
  Weight: 116.9 kg

DRUGS (2)
  1. ATEZOLIZUMAB. [Suspect]
     Active Substance: ATEZOLIZUMAB
     Indication: MALIGNANT MELANOMA
     Dosage: 13/AUG/2018, AT 12.35, MOST RECENT DOSE OF ATEZOLIZUMAB PRIOR TO SAE ONSET
     Route: 042
     Dates: start: 20180813
  2. COBIMETINIB. [Suspect]
     Active Substance: COBIMETINIB
     Indication: MALIGNANT MELANOMA
     Dosage: 27/AUG/2018, MOST RECENT DOSE OF COBIMETINIB PRIOR TO SAE ONSET 60 MG?ON 28/AUG/2018, SHE RECEIVED T
     Route: 048
     Dates: start: 20180813

REACTIONS (2)
  - Diarrhoea [Recovered/Resolved]
  - Hypotension [Recovered/Resolved]

NARRATIVE: CASE EVENT DATE: 20180825
